FAERS Safety Report 8925872 (Version 6)
Quarter: 2013Q2

REPORT INFORMATION
  Report Type: Spontaneous
  Country: GB (occurrence: GB)
  Receive Date: 20121126
  Receipt Date: 20130429
  Transmission Date: 20140414
  Serious: Yes (Other)
  Sender: FDA-Public Use
  Company Number: PHFR2012GB005358

PATIENT
  Age: 51 Year
  Sex: Male

DRUGS (8)
  1. CLOZARIL [Suspect]
     Indication: SCHIZOPHRENIA
     Dosage: UNK
     Route: 048
     Dates: start: 20041123
  2. CLOZARIL [Suspect]
     Dosage: 200 UNK, UNK
     Route: 048
     Dates: start: 2007
  3. CLOZARIL [Suspect]
     Dosage: 725 MG, UNK
  4. CLOZARIL [Suspect]
     Dosage: UNK
     Route: 048
     Dates: end: 20121129
  5. AMISULPRIDE [Concomitant]
     Dosage: 200 MG, UNK
     Route: 048
     Dates: start: 20120210
  6. SODIUM VALPROATE [Concomitant]
     Dosage: 500 MG, BID
     Route: 048
     Dates: start: 2011
  7. OLANZAPINE [Concomitant]
     Dosage: 300 MG, UNK
     Route: 048
  8. ZUCLOPENTHIXOL DECANOATE [Concomitant]
     Indication: SCHIZOPHRENIA
     Dosage: 200 MG, UNK
     Route: 030
     Dates: start: 201210

REACTIONS (11)
  - Gastritis [Unknown]
  - Non-Hodgkin^s lymphoma [Not Recovered/Not Resolved]
  - Splenomegaly [Unknown]
  - Staphylococcal infection [Recovered/Resolved]
  - Pancytopenia [Recovering/Resolving]
  - White blood cell count decreased [Recovered/Resolved]
  - Platelet count decreased [Recovered/Resolved]
  - Neutropenia [Recovered/Resolved]
  - Neutrophil count decreased [Recovered/Resolved]
  - Anaemia [Not Recovered/Not Resolved]
  - Haemoglobin decreased [Unknown]
